FAERS Safety Report 5796761-X (Version None)
Quarter: 2008Q3

REPORT INFORMATION
  Report Type: 
  Country: None (occurrence: None)
  Receive Date: 20080701
  Receipt Date: 20080619
  Transmission Date: 20090109
  Serious: Yes (Other)
  Sender: FDA-Public Use
  Company Number: CA-TYCO HEALTHCARE/MALLINCKRODT-T200801041

PATIENT

DRUGS (2)
  1. FLUOXETINE [Suspect]
  2. SULFA [Suspect]

REACTIONS (2)
  - DRUG DISPENSING ERROR [None]
  - EPIDERMAL NECROSIS [None]
